FAERS Safety Report 8003301-3 (Version None)
Quarter: 2011Q4

REPORT INFORMATION
  Report Type: 
  Country: None (occurrence: None)
  Receive Date: 20111222
  Receipt Date: 20111220
  Transmission Date: 20120403
  Serious: Yes (Death)
  Sender: FDA-Public Use
  Company Number: PHHY2011NL82915

PATIENT
  Sex: Male

DRUGS (10)
  1. MORPHINE [Concomitant]
     Dosage: UNK UKN, UNK
  2. ACETAMINOPHEN [Concomitant]
     Dosage: UNK UKN, UNK
  3. ZOMETA [Suspect]
     Indication: PROSTATE CANCER METASTATIC
     Dosage: 4 MG/5 ML
     Dates: start: 20110516
  4. ANTIHISTAMINICS [Concomitant]
     Dosage: UNK UKN, UNK
  5. ZOMETA [Suspect]
     Dosage: 4 MG/5 ML
     Dates: start: 20110805
  6. ANTIARRHYTHMICS [Concomitant]
     Dosage: UNK UKN, UNK
  7. DEXAMETHASONE [Concomitant]
     Dosage: UNK UKN, UNK
  8. NAPROXEN [Concomitant]
     Dosage: UNK UKN, UNK
  9. TRICYCLIC ANTIDEPRESSANTS [Concomitant]
     Dosage: UNK UKN, UNK
  10. THEOPHYLLINE [Concomitant]
     Dosage: UNK UKN, UNK

REACTIONS (2)
  - NEOPLASM MALIGNANT [None]
  - NEOPLASM PROGRESSION [None]
